FAERS Safety Report 10809628 (Version 1)
Quarter: 2015Q1

REPORT INFORMATION
  Report Type: Report from Study
  Country: US (occurrence: US)
  Receive Date: 20150217
  Receipt Date: 20150217
  Transmission Date: 20150721
  Serious: No
  Sender: FDA-Public Use
  Company Number: US-ABBVIE-14K-163-1218081-00

PATIENT
  Age: 34 Year
  Sex: Male

DRUGS (3)
  1. HUMIRA [Suspect]
     Active Substance: ADALIMUMAB
     Indication: CROHN^S DISEASE
     Dates: start: 20140222, end: 20140222
  2. HUMIRA [Suspect]
     Active Substance: ADALIMUMAB
     Dates: start: 20140322
  3. HUMIRA [Suspect]
     Active Substance: ADALIMUMAB
     Dates: start: 20140308, end: 20140308

REACTIONS (3)
  - Crohn^s disease [Not Recovered/Not Resolved]
  - Proctalgia [Not Recovered/Not Resolved]
  - Fatigue [Not Recovered/Not Resolved]

NARRATIVE: CASE EVENT DATE: 20140324
